FAERS Safety Report 7730525-2 (Version None)
Quarter: 2011Q3

REPORT INFORMATION
  Report Type: 
  Country: None (occurrence: None)
  Receive Date: 20110901
  Receipt Date: 20110901
  Transmission Date: 20111222
  Serious: No
  Sender: FDA-Public Use
  Company Number: None

PATIENT
  Sex: Female
  Weight: 63.9572 kg

DRUGS (1)
  1. HYDRALAZINE HCL [Suspect]
     Indication: HYPERTENSION
     Dosage: 1 PILL PM 1 A DAY
     Dates: start: 20110803, end: 20110808

REACTIONS (9)
  - CHILLS [None]
  - DRUG INEFFECTIVE [None]
  - HEADACHE [None]
  - DYSPNOEA [None]
  - CHEST PAIN [None]
  - FATIGUE [None]
  - EMOTIONAL DISORDER [None]
  - PALPITATIONS [None]
  - PYREXIA [None]
